FAERS Safety Report 7240274-5 (Version None)
Quarter: 2011Q1

REPORT INFORMATION
  Report Type: 
  Country: None (occurrence: None)
  Receive Date: 20110124
  Receipt Date: 20110111
  Transmission Date: 20110831
  Serious: Yes (Life-Threatening, Hospitalization)
  Sender: FDA-Public Use
  Company Number: PHHY2010JP54003

PATIENT
  Sex: Male
  Weight: 56 kg

DRUGS (10)
  1. INTERFERON ALFA [Concomitant]
     Indication: RENAL CELL CARCINOMA
     Dosage: 3000000DF
     Dates: start: 19930501
  2. BIOFERMIN [Concomitant]
     Indication: PROPHYLAXIS
     Dosage: 2 G, UNK
     Route: 048
     Dates: start: 20080703
  3. CALCIUM LACTATE [Concomitant]
     Indication: PROPHYLAXIS
     Dosage: 3 G, UNK
     Route: 048
     Dates: start: 20081006
  4. FERO-GRADUMET [Concomitant]
     Indication: PROPHYLAXIS
     Dosage: 105 MG, UNK
     Route: 048
     Dates: start: 20091117
  5. ALFAROL [Concomitant]
     Indication: PROPHYLAXIS
     Dosage: 2 UG, UNK
     Dates: start: 20081006
  6. LASIX [Concomitant]
     Indication: PROPHYLAXIS
     Dosage: 20 MG, UNK
     Route: 048
     Dates: start: 20100603
  7. TAKEPRON [Concomitant]
     Indication: PROPHYLAXIS
     Dosage: 15 MG, UNK
     Route: 048
     Dates: start: 20100708
  8. WHOLE HUMAN BLOOD [Concomitant]
     Dosage: UNK
     Dates: start: 20080701, end: 20100601
  9. AFINITOR [Suspect]
     Indication: RENAL CELL CARCINOMA
     Dosage: 10 MG, DAILY
     Route: 048
     Dates: start: 20100601, end: 20100811
  10. SORAFENIB TOSILATE [Concomitant]
     Indication: RENAL CELL CARCINOMA
     Dosage: 800 MG, UNK
     Route: 048
     Dates: start: 20080624, end: 20100531

REACTIONS (7)
  - DEPRESSED LEVEL OF CONSCIOUSNESS [None]
  - MALAISE [None]
  - INFLAMMATION [None]
  - PYREXIA [None]
  - HYPOTHYROIDISM [None]
  - PNEUMONIA [None]
  - C-REACTIVE PROTEIN INCREASED [None]
